FAERS Safety Report 6807647-3 (Version None)
Quarter: 2010Q2

REPORT INFORMATION
  Report Type: 
  Country: None (occurrence: None)
  Receive Date: 20100629
  Receipt Date: 20081028
  Transmission Date: 20101027
  Serious: Yes (Hospitalization, Other)
  Sender: FDA-Public Use
  Company Number: US-PFIZER INC-2008090461

PATIENT

DRUGS (1)
  1. BEXTRA [Suspect]
     Indication: NECK PAIN

REACTIONS (1)
  - CONVULSION [None]
